FAERS Safety Report 9304116 (Version 1)
Quarter: 2013Q2

REPORT INFORMATION
  Report Type: Spontaneous
  Country: JP (occurrence: JP)
  Receive Date: 20130522
  Receipt Date: 20130522
  Transmission Date: 20140414
  Serious: Yes (Other)
  Sender: FDA-Public Use
  Company Number: JP-PFIZER INC-2013147045

PATIENT
  Age: 48 Year
  Sex: Female

DRUGS (5)
  1. ZITHROMAC [Suspect]
     Dosage: 500 MG PER DAY
     Route: 048
     Dates: start: 20130509
  2. ROCEPHIN [Suspect]
     Dosage: 1 G, 1X/DAY
     Route: 041
     Dates: start: 20130509
  3. LOXONIN [Suspect]
     Dosage: 3 DF, 1X/DAY
     Route: 048
  4. HUMALOG [Suspect]
     Indication: DIABETES MELLITUS
     Route: 058
  5. INSULIN DETEMIR [Suspect]
     Indication: DIABETES MELLITUS
     Route: 058

REACTIONS (4)
  - Acute febrile neutrophilic dermatosis [Recovering/Resolving]
  - Erythema nodosum [Recovering/Resolving]
  - Alanine aminotransferase increased [Unknown]
  - Aspartate aminotransferase increased [Unknown]
